FAERS Safety Report 21663975 (Version 1)
Quarter: 2022Q4

REPORT INFORMATION
  Report Type: Spontaneous
  Country: JP (occurrence: JP)
  Receive Date: 20221130
  Receipt Date: 20221130
  Transmission Date: 20230112
  Serious: Yes (Other)
  Sender: FDA-Public Use
  Company Number: JP-ELI_LILLY_AND_COMPANY-JP202211009387

PATIENT
  Age: 75 Year
  Sex: Female

DRUGS (1)
  1. NECITUMUMAB [Suspect]
     Active Substance: NECITUMUMAB
     Indication: Lung squamous cell carcinoma stage IV
     Route: 042

REACTIONS (3)
  - Hypomagnesaemia [Unknown]
  - Malignant neoplasm progression [Unknown]
  - Skin disorder [Unknown]
